FAERS Safety Report 19891279 (Version 2)
Quarter: 2021Q4

REPORT INFORMATION
  Report Type: Other
  Country: BD (occurrence: BD)
  Receive Date: 20210928
  Receipt Date: 20211001
  Transmission Date: 20220303
  Serious: Yes (Death)
  Sender: FDA-Public Use
  Company Number: BD-ROCHE-2922008

PATIENT
  Age: 45 Year
  Sex: Male
  Weight: 60 kg

DRUGS (5)
  1. MABTHERA [Suspect]
     Active Substance: RITUXIMAB
     Indication: Chronic lymphocytic leukaemia
     Route: 041
  2. COTRIM DS [Concomitant]
  3. VIRUXAN [Concomitant]
  4. FOLIC ACID [Concomitant]
     Active Substance: FOLIC ACID
  5. FEBUSTAT [Concomitant]

REACTIONS (3)
  - Pneumonia [Fatal]
  - Pyrexia [Fatal]
  - Chest pain [Fatal]

NARRATIVE: CASE EVENT DATE: 20210913
